FAERS Safety Report 7817325-X (Version None)
Quarter: 2011Q4

REPORT INFORMATION
  Report Type: 
  Country: None (occurrence: None)
  Receive Date: 20111017
  Receipt Date: 20111007
  Transmission Date: 20120403
  Serious: Yes (Hospitalization)
  Sender: FDA-Public Use
  Company Number: US-NAPPMUNDI-USA-2011-0072158

PATIENT
  Sex: Female

DRUGS (5)
  1. WELLBUTRIN [Concomitant]
     Indication: DEPRESSION
  2. PAXIL [Concomitant]
     Indication: DEPRESSION
  3. ZOLOFT [Concomitant]
     Indication: PRODUCT USED FOR UNKNOWN INDICATION
  4. BUTRANS [Suspect]
     Indication: ARTHRALGIA
     Dosage: 5 MCG/HR, DAILY
     Dates: start: 20110707, end: 20110710
  5. ALCOHOL [Suspect]
     Indication: PRODUCT USED FOR UNKNOWN INDICATION

REACTIONS (2)
  - ALCOHOL USE [None]
  - HYPERTHERMIA MALIGNANT [None]
